FAERS Safety Report 25874702 (Version 2)
Quarter: 2025Q4

REPORT INFORMATION
  Report Type: Spontaneous
  Country: US (occurrence: US)
  Receive Date: 20251002
  Receipt Date: 20251022
  Transmission Date: 20260118
  Serious: No
  Sender: PFIZER
  Company Number: US-PFIZER INC-202500194113

PATIENT
  Age: 83 Year
  Sex: Female
  Weight: 75.283 kg

DRUGS (2)
  1. CIBINQO [Suspect]
     Active Substance: ABROCITINIB
     Indication: Rash
     Dosage: 100 MG, 1X/DAY
     Route: 048
     Dates: start: 2025
  2. CIBINQO [Suspect]
     Active Substance: ABROCITINIB
     Dosage: 100 MG, M-W-F
     Route: 048
     Dates: start: 20250808

REACTIONS (2)
  - Abdominal discomfort [Recovering/Resolving]
  - Heart rate increased [Recovering/Resolving]

NARRATIVE: CASE EVENT DATE: 20250101
